FAERS Safety Report 8143194-7 (Version None)
Quarter: 2012Q1

REPORT INFORMATION
  Report Type: 
  Country: None (occurrence: None)
  Receive Date: 20120217
  Receipt Date: 20120214
  Transmission Date: 20120608
  Serious: No
  Sender: FDA-Public Use
  Company Number: US-PFIZER INC-2012040707

PATIENT
  Sex: Female

DRUGS (2)
  1. LEVOTHYROXINE [Concomitant]
     Indication: THYROID DISORDER
     Dosage: UNK
  2. XALKORI [Suspect]
     Indication: LUNG NEOPLASM MALIGNANT
     Dosage: 200 MG, 2X/DAY
     Dates: start: 20120120

REACTIONS (4)
  - LIVER FUNCTION TEST ABNORMAL [None]
  - VISUAL IMPAIRMENT [None]
  - CONSTIPATION [None]
  - PAIN IN EXTREMITY [None]
